FAERS Safety Report 23889182 (Version 1)
Quarter: 2024Q2

REPORT INFORMATION
  Report Type: Spontaneous
  Country: CN (occurrence: CN)
  Receive Date: 20240523
  Receipt Date: 20240523
  Transmission Date: 20240715
  Serious: Yes (Other)
  Sender: FDA-Public Use
  Company Number: CN-BAYER-2024A074575

PATIENT
  Age: 9 Year
  Sex: Male
  Weight: 24.8 kg

DRUGS (2)
  1. ULTRAVIST [Suspect]
     Active Substance: IOPROMIDE
     Indication: Computerised tomogram
     Dosage: 45 ML, ONCE
     Route: 042
     Dates: start: 20240517, end: 20240517
  2. ULTRAVIST [Suspect]
     Active Substance: IOPROMIDE
     Indication: Abdominal pain

REACTIONS (4)
  - Flushing [Recovering/Resolving]
  - Conjunctival hyperaemia [Recovering/Resolving]
  - Rash erythematous [Recovering/Resolving]
  - Dyspnoea [Recovering/Resolving]

NARRATIVE: CASE EVENT DATE: 20240517
